FAERS Safety Report 17577745 (Version 5)
Quarter: 2020Q3

REPORT INFORMATION
  Report Type: Report from Study
  Country: None (occurrence: US)
  Receive Date: 20200324
  Receipt Date: 20200922
  Transmission Date: 20201102
  Serious: Yes (Hospitalization)
  Sender: FDA-Public Use
  Company Number: US-ABBVIE-20K-163-3330960-00

PATIENT
  Sex: Female
  Weight: 61.29 kg

DRUGS (4)
  1. VITAMIN B12 [Concomitant]
     Active Substance: CYANOCOBALAMIN
     Indication: VITAMIN B12 DEFICIENCY
  2. HUMIRA [Suspect]
     Active Substance: ADALIMUMAB
     Indication: CROHN^S DISEASE
     Route: 058
     Dates: start: 201502, end: 201512
  3. HUMIRA [Suspect]
     Active Substance: ADALIMUMAB
     Route: 058
     Dates: start: 201602
  4. IBUPROFEN. [Concomitant]
     Active Substance: IBUPROFEN
     Indication: SWELLING

REACTIONS (15)
  - High risk pregnancy [Recovered/Resolved]
  - Maternal exposure during pregnancy [Unknown]
  - Haemorrhoids [Not Recovered/Not Resolved]
  - Stress [Recovered/Resolved]
  - Crohn^s disease [Recovered/Resolved]
  - Injection site bruising [Recovering/Resolving]
  - Nausea [Not Recovered/Not Resolved]
  - Injection site pain [Not Recovered/Not Resolved]
  - Normal newborn [Unknown]
  - Injection site pain [Recovering/Resolving]
  - Decreased appetite [Recovered/Resolved]
  - Product storage error [Recovering/Resolving]
  - Morning sickness [Recovered/Resolved]
  - Gastritis [Not Recovered/Not Resolved]
  - Mastitis [Recovered/Resolved]

NARRATIVE: CASE EVENT DATE: 2015
